FAERS Safety Report 11443859 (Version 1)
Quarter: 2015Q3

REPORT INFORMATION
  Report Type: Spontaneous
  Country: US (occurrence: US)
  Receive Date: 20150901
  Receipt Date: 20150901
  Transmission Date: 20151125
  Serious: No
  Sender: FDA-Public Use
  Company Number: US-AMGEN-USASP2015087409

PATIENT
  Age: 30 Year
  Sex: Female

DRUGS (1)
  1. ENBREL [Suspect]
     Active Substance: ETANERCEPT
     Indication: PSORIATIC ARTHROPATHY
     Dosage: 50 MG, QWK
     Route: 065
     Dates: start: 201507

REACTIONS (8)
  - Tooth disorder [Unknown]
  - Pyrexia [Recovered/Resolved]
  - Erythema [Unknown]
  - Toothache [Unknown]
  - Nasal congestion [Unknown]
  - Fatigue [Unknown]
  - Gingivitis [Unknown]
  - Vomiting [Unknown]

NARRATIVE: CASE EVENT DATE: 2015
